FAERS Safety Report 6808836-4 (Version None)
Quarter: 2010Q2

REPORT INFORMATION
  Report Type: 
  Country: None (occurrence: None)
  Receive Date: 20100630
  Receipt Date: 20091001
  Transmission Date: 20101027
  Serious: No
  Sender: FDA-Public Use
  Company Number: US-PFIZER INC-2009260395

PATIENT
  Sex: Male
  Weight: 74.842 kg

DRUGS (5)
  1. ARTHROTEC [Suspect]
     Indication: BACK DISORDER
     Dosage: DICLOFENAC/MISOPROSTOL 75MG/0.2MG
     Route: 048
  2. LIPITOR [Concomitant]
  3. MULTI-VITAMINS [Concomitant]
     Dosage: UNK
  4. NEURONTIN [Concomitant]
  5. KLONOPIN [Concomitant]

REACTIONS (1)
  - DYSPHAGIA [None]
